FAERS Safety Report 6992958-1 (Version None)
Quarter: 2010Q3

REPORT INFORMATION
  Report Type: 
  Country: None (occurrence: None)
  Receive Date: 20100917
  Receipt Date: 20100914
  Transmission Date: 20110219
  Serious: Yes (Life-Threatening, Disabling)
  Sender: FDA-Public Use
  Company Number: CO-WYE-H17541110

PATIENT
  Sex: Male

DRUGS (1)
  1. RAPAMUNE [Suspect]
     Indication: PROPHYLAXIS AGAINST TRANSPLANT REJECTION
     Route: 048
     Dates: start: 20080101, end: 20080101

REACTIONS (3)
  - ACNE [None]
  - APHAGIA [None]
  - STOMATITIS [None]
